FAERS Safety Report 4665101-1 (Version None)
Quarter: 2005Q2

REPORT INFORMATION
  Report Type: 
  Country: None (occurrence: None)
  Receive Date: 20050517
  Receipt Date: 20050309
  Transmission Date: 20051028
  Serious: No
  Sender: FDA-Public Use
  Company Number: S05-USA-01225-01

PATIENT
  Age: 76 Year
  Sex: Female

DRUGS (10)
  1. NAMENDA [Suspect]
     Indication: AMNESIA
     Dosage: 5 MG QD PO
     Route: 048
     Dates: start: 20050221, end: 20050227
  2. NAMENDA [Suspect]
     Indication: AMNESIA
     Dosage: 5 MG BID PO
     Route: 048
     Dates: start: 20050228, end: 20050306
  3. NAMENDA [Suspect]
     Indication: AMNESIA
     Dosage: 15 MG QD PO
     Route: 048
     Dates: start: 20050307
  4. TOPROL-XL [Concomitant]
  5. ZETIA [Concomitant]
  6. PLAVIX [Concomitant]
  7. FOLIC ACID [Concomitant]
  8. ASCORBIC ACID [Concomitant]
  9. FISH OIL [Concomitant]
  10. CALCIUM GLUCONATE [Concomitant]

REACTIONS (2)
  - CONFUSIONAL STATE [None]
  - DIZZINESS [None]
